FAERS Safety Report 11094535 (Version 1)
Quarter: 2015Q2

REPORT INFORMATION
  Report Type: Spontaneous
  Country: US (occurrence: US)
  Receive Date: 20150506
  Receipt Date: 20150506
  Transmission Date: 20150821
  Serious: No
  Sender: FDA-Public Use
  Company Number: US-ANACOR-2015ANA00022

PATIENT

DRUGS (1)
  1. KERYDIN [Suspect]
     Active Substance: TAVABOROLE

REACTIONS (1)
  - Application site exfoliation [Unknown]
